FAERS Safety Report 7417911-5 (Version None)
Quarter: 2011Q2

REPORT INFORMATION
  Report Type: 
  Country: None (occurrence: None)
  Receive Date: 20110415
  Receipt Date: 20110408
  Transmission Date: 20111010
  Serious: Yes (Death, Hospitalization)
  Sender: FDA-Public Use
  Company Number: US-ELI_LILLY_AND_COMPANY-US201103006881

PATIENT
  Sex: Female
  Weight: 90.249 kg

DRUGS (8)
  1. MULTI-VITAMIN [Concomitant]
     Dosage: UNK, UNKNOWN
     Route: 065
  2. MAGNESIUM [Concomitant]
     Dosage: UNK, UNKNOWN
     Route: 065
  3. PROCRIT [Concomitant]
  4. GEMZAR [Suspect]
     Indication: CERVIX CARCINOMA
     Dosage: 1500 MG, DAY 1 + 8 OF 28 DAY CYCLE
     Route: 042
     Dates: start: 20100830, end: 20101011
  5. NEULASTA [Suspect]
     Dosage: UNK
  6. LISINOPRIL [Concomitant]
     Dosage: UNK, UNKNOWN
     Route: 065
  7. IRON [Concomitant]
     Dosage: UNK, UNKNOWN
     Route: 065
  8. METOPROLOL [Concomitant]
     Dosage: UNK, UNKNOWN
     Route: 065

REACTIONS (4)
  - NEOPLASM MALIGNANT [None]
  - HYDRONEPHROSIS [None]
  - HYPERTENSION [None]
  - RENAL FAILURE ACUTE [None]
